FAERS Safety Report 20405670 (Version 1)
Quarter: 2022Q1

REPORT INFORMATION
  Report Type: Spontaneous
  Country: US (occurrence: None)
  Receive Date: 20220130
  Receipt Date: 20220130
  Transmission Date: 20220424
  Serious: Yes (unspecified)
  Sender: FDA-Public Use
  Company Number: None

PATIENT
  Age: 37 Year
  Sex: Female
  Weight: 78.75 kg

DRUGS (9)
  1. BUPRENORPHINE HYDROCHLORIDE [Suspect]
     Active Substance: BUPRENORPHINE HYDROCHLORIDE
     Indication: Drug dependence
     Dosage: OTHER QUANTITY : 2 TABLET(S);?FREQUENCY : TWICE A DAY;?
     Route: 060
     Dates: start: 20200716, end: 20220130
  2. SEROQUEL [Concomitant]
     Active Substance: QUETIAPINE FUMARATE
  3. ADDERALL [Concomitant]
     Active Substance: AMPHETAMINE ASPARTATE\AMPHETAMINE SULFATE\DEXTROAMPHETAMINE SACCHARATE\DEXTROAMPHETAMINE SULFATE
  4. XANAX [Concomitant]
     Active Substance: ALPRAZOLAM
  5. METOPROLOL [Concomitant]
     Active Substance: METOPROLOL
  6. NORVASC [Concomitant]
     Active Substance: AMLODIPINE BESYLATE
  7. VITAMIN D [Concomitant]
     Active Substance: VITAMIN D NOS
  8. VITAMIN C [Concomitant]
     Active Substance: ASCORBIC ACID
  9. LYSINE [Concomitant]
     Active Substance: LYSINE

REACTIONS (3)
  - Tooth extraction [None]
  - Tooth infection [None]
  - Periodontal disease [None]

NARRATIVE: CASE EVENT DATE: 20211215
